FAERS Safety Report 10461027 (Version 1)
Quarter: 2014Q3

REPORT INFORMATION
  Report Type: Spontaneous
  Country: DE (occurrence: None)
  Receive Date: 20140910
  Receipt Date: 20140910
  Transmission Date: 20150326
  Serious: Yes (Other)
  Sender: FDA-Public Use
  Company Number: GTI002522

PATIENT
  Age: 29 Year
  Sex: Female

DRUGS (1)
  1. IGIV (MANUFACTURER UNKNOWN) (IMMUNE GLOBULIN IV (HUMAN) , CAPRYLATE/ CHROMATOGRAPHY PURIFIED) [Suspect]
     Active Substance: HUMAN IMMUNOGLOBULIN G
     Indication: PRODUCT USED FOR UNKNOWN INDICATION

REACTIONS (3)
  - Encephalitis [None]
  - Cerebrovascular accident [None]
  - Posterior reversible encephalopathy syndrome [None]
